FAERS Safety Report 5017484-0 (Version None)
Quarter: 2006Q2

REPORT INFORMATION
  Report Type: 
  Country: None (occurrence: None)
  Receive Date: 20060414
  Receipt Date: 20060220
  Transmission Date: 20061013
  Serious: No
  Sender: FDA-Public Use
  Company Number: 2006SP000885

PATIENT
  Age: 56 Year
  Sex: Female
  Weight: 100.2449 kg

DRUGS (2)
  1. LUNESTA [Suspect]
     Indication: INSOMNIA
     Dosage: 2 MG;HS;ORAL
     Route: 048
     Dates: start: 20060217, end: 20060219
  2. HALCION [Concomitant]

REACTIONS (2)
  - HYPOAESTHESIA [None]
  - INSOMNIA [None]
